FAERS Safety Report 25372261 (Version 1)
Quarter: 2025Q2

REPORT INFORMATION
  Report Type: Spontaneous
  Country: US (occurrence: US)
  Receive Date: 20250529
  Receipt Date: 20250529
  Transmission Date: 20250716
  Serious: No
  Sender: CELLTRION
  Company Number: US-CELLTRION INC.-2025US014107

PATIENT

DRUGS (4)
  1. ADALIMUMAB [Suspect]
     Active Substance: ADALIMUMAB
     Indication: Cutaneous T-cell lymphoma
  2. DUPILUMAB [Suspect]
     Active Substance: DUPILUMAB
     Indication: Cutaneous T-cell lymphoma
  3. METHOTREXATE [Suspect]
     Active Substance: METHOTREXATE
     Indication: Cutaneous T-cell lymphoma
  4. BRENTUXIMAB VEDOTIN [Suspect]
     Active Substance: BRENTUXIMAB VEDOTIN
     Indication: Cutaneous T-cell lymphoma

REACTIONS (1)
  - Intentional product use issue [Unknown]
